FAERS Safety Report 4599092-9 (Version None)
Quarter: 2005Q1

REPORT INFORMATION
  Report Type: 
  Country: None (occurrence: None)
  Receive Date: 20050304
  Receipt Date: 20050211
  Transmission Date: 20050727
  Serious: Yes (Hospitalization, Disabling, Other)
  Sender: FDA-Public Use
  Company Number: US-MERCK-0502USA01504

PATIENT
  Age: 78 Year
  Sex: Male
  Weight: 81 kg

DRUGS (6)
  1. VYTORIN [Suspect]
     Indication: HYPERLIPIDAEMIA
     Route: 048
     Dates: start: 20041101, end: 20050104
  2. PRILOSEC [Concomitant]
     Route: 048
  3. FLOMAX [Concomitant]
     Route: 048
  4. METOPROLOL [Concomitant]
     Route: 048
  5. AMIODARONE [Concomitant]
     Route: 048
     Dates: end: 20050104
  6. HYDROCHLOROTHIAZIDE [Concomitant]
     Route: 048
     Dates: end: 20050104

REACTIONS (6)
  - ALANINE AMINOTRANSFERASE INCREASED [None]
  - ASPARTATE AMINOTRANSFERASE INCREASED [None]
  - ASTHENIA [None]
  - BLOOD CREATINE PHOSPHOKINASE INCREASED [None]
  - BLOOD LACTATE DEHYDROGENASE INCREASED [None]
  - MYOSITIS [None]
